FAERS Safety Report 21556636 (Version 1)
Quarter: 2022Q4

REPORT INFORMATION
  Report Type: Spontaneous
  Country: DE (occurrence: DE)
  Receive Date: 20221104
  Receipt Date: 20221104
  Transmission Date: 20230113
  Serious: Yes (Hospitalization)
  Sender: FDA-Public Use
  Company Number: DE-ADRED-07537-04

PATIENT
  Age: 68 Year
  Sex: Male

DRUGS (13)
  1. BISOPROLOL [Suspect]
     Active Substance: BISOPROLOL
     Indication: Product used for unknown indication
     Dosage: 5 MG, 1-0-1-0
     Route: 048
  2. ACTRAPID [Concomitant]
     Active Substance: INSULIN HUMAN
     Dosage: ACCORDING TO SCHEME, ACTRAPID FLEXPEN 100I.E./ML READY-TO-USE PEN
     Route: 058
  3. LERCANIDIPINE [Concomitant]
     Active Substance: LERCANIDIPINE
     Dosage: 10 MG, 1-0-1-0, 12 H (HOURS)
     Route: 048
  4. RAMIPRIL [Concomitant]
     Active Substance: RAMIPRIL
     Dosage: 5 MG, 1-0-1-0
     Route: 048
  5. TOUJEO [Concomitant]
     Active Substance: INSULIN GLARGINE
     Dosage: 20 INTERNATIONAL UNIT, 0-0-0-1
     Route: 058
  6. CETIRIZINE [Concomitant]
     Active Substance: CETIRIZINE HYDROCHLORIDE
     Dosage: 10 MG, 0-0-1-0
     Route: 048
  7. TORSEMIDE [Concomitant]
     Active Substance: TORSEMIDE
     Dosage: 50 MG, 1-0-0-0
  8. ARIPIPRAZOLE [Concomitant]
     Active Substance: ARIPIPRAZOLE
     Dosage: 30 MG, 1-0-0-0
     Route: 048
  9. MOMETASON GLENMARK [Concomitant]
     Dosage: 1-0-0-0
     Route: 062
  10. MELPERONE [Concomitant]
     Active Substance: MELPERONE
     Dosage: 25 MG, 0-0-2-0
     Route: 048
  11. MOXONIDINE [Concomitant]
     Active Substance: MOXONIDINE
     Dosage: 0.2 MG, 1-0-1-0
     Route: 048
  12. ALLOPURINOL [Concomitant]
     Active Substance: ALLOPURINOL
     Dosage: 100 MG, 0-0-1-0
     Route: 048
  13. BIPERIDEN NEURAXPHARM [Concomitant]
     Dosage: 4 MG, 1-0-0-0
     Route: 048

REACTIONS (5)
  - Swelling [Unknown]
  - Tachypnoea [Unknown]
  - Inflammation [Unknown]
  - Pyrexia [Unknown]
  - Confusional state [Unknown]
